FAERS Safety Report 5110458-0 (Version None)
Quarter: 2006Q3

REPORT INFORMATION
  Report Type: 
  Country: None (occurrence: None)
  Receive Date: 20060915
  Receipt Date: 20060904
  Transmission Date: 20061208
  Serious: Yes (Disabling)
  Sender: FDA-Public Use
  Company Number: 2006-146876-NL

PATIENT
  Age: 47 Year
  Sex: Female

DRUGS (7)
  1. MIRTAZAPINE [Suspect]
     Indication: ANXIETY
     Dosage: 15 DF/30 DF/15 DF, ORAL
     Route: 048
     Dates: start: 20051216, end: 20051219
  2. MIRTAZAPINE [Suspect]
     Indication: DEPRESSION
     Dosage: 15 DF/30 DF/15 DF, ORAL
     Route: 048
     Dates: start: 20051216, end: 20051219
  3. MIRTAZAPINE [Suspect]
     Indication: ANXIETY
     Dosage: 15 DF/30 DF/15 DF, ORAL
     Route: 048
     Dates: start: 20051210, end: 20060110
  4. MIRTAZAPINE [Suspect]
     Indication: DEPRESSION
     Dosage: 15 DF/30 DF/15 DF, ORAL
     Route: 048
     Dates: start: 20051210, end: 20060110
  5. MIRTAZAPINE [Suspect]
     Indication: ANXIETY
     Dosage: 15 DF/30 DF/15 DF, ORAL
     Route: 048
     Dates: start: 20060125, end: 20060301
  6. MIRTAZAPINE [Suspect]
     Indication: DEPRESSION
     Dosage: 15 DF/30 DF/15 DF, ORAL
     Route: 048
     Dates: start: 20060125, end: 20060301
  7. DIAZEPAM [Concomitant]

REACTIONS (6)
  - ARTHRALGIA [None]
  - BURNING SENSATION [None]
  - MOBILITY DECREASED [None]
  - MYALGIA [None]
  - PAIN IN EXTREMITY [None]
  - TREMOR [None]
